FAERS Safety Report 7123729-3 (Version None)
Quarter: 2010Q4

REPORT INFORMATION
  Report Type: 
  Country: None (occurrence: None)
  Receive Date: 20101125
  Receipt Date: 20101112
  Transmission Date: 20110411
  Serious: Yes (Other)
  Sender: FDA-Public Use
  Company Number: PHHY2010BR77415

PATIENT
  Sex: Female

DRUGS (2)
  1. DIOVAN HCT [Suspect]
     Dosage: 160/5 MG
  2. DIOVAN HCT [Suspect]
     Dosage: 320/12,5 MG

REACTIONS (2)
  - BLOOD PRESSURE FLUCTUATION [None]
  - SURGERY [None]
